FAERS Safety Report 8302703-5 (Version None)
Quarter: 2012Q2

REPORT INFORMATION
  Report Type: 
  Country: None (occurrence: None)
  Receive Date: 20120420
  Receipt Date: 20120402
  Transmission Date: 20120825
  Serious: Yes (Other)
  Sender: FDA-Public Use
  Company Number: PT-BAXTER-2012BAX002599

PATIENT
  Age: 60 Year
  Sex: Female

DRUGS (5)
  1. EPOGEN [Concomitant]
     Route: 065
  2. PHYSIONEAL 40 GLUCOSE 2,27% P/V / 22,7 MG/ML [Suspect]
     Route: 033
     Dates: start: 20060515
  3. NUTRINEAL [Suspect]
     Route: 033
     Dates: start: 20060515
  4. EXTRANEAL [Suspect]
     Route: 033
     Dates: start: 20060515
  5. VITAMIN D [Concomitant]
     Route: 065

REACTIONS (1)
  - CEREBROVASCULAR ACCIDENT [None]
